FAERS Safety Report 25590940 (Version 3)
Quarter: 2025Q3

REPORT INFORMATION
  Report Type: Spontaneous
  Country: US (occurrence: US)
  Receive Date: 20250722
  Receipt Date: 20250902
  Transmission Date: 20251021
  Serious: Yes (Hospitalization, Other)
  Sender: INCYTE
  Company Number: US-INCYTE CORPORATION-2025IN007935

PATIENT
  Age: 82 Year
  Weight: 86.626 kg

DRUGS (2)
  1. JAKAFI [Suspect]
     Active Substance: RUXOLITINIB
     Indication: Myeloproliferative neoplasm
  2. JAKAFI [Suspect]
     Active Substance: RUXOLITINIB
     Dosage: 10 MG ALTERNATING WITH 15 MG, QD

REACTIONS (3)
  - Peripheral arterial occlusive disease [Unknown]
  - Impaired healing [Unknown]
  - Off label use [Unknown]
